FAERS Safety Report 19749114 (Version 1)
Quarter: 2021Q3

REPORT INFORMATION
  Report Type: Spontaneous
  Country: US (occurrence: US)
  Receive Date: 20210825
  Receipt Date: 20210825
  Transmission Date: 20211014
  Serious: Yes (Other)
  Sender: FDA-Public Use
  Company Number: None

PATIENT
  Age: 55 Year
  Sex: Female
  Weight: 99 kg

DRUGS (5)
  1. ZYRTEC [Concomitant]
     Active Substance: CETIRIZINE HYDROCHLORIDE
  2. BUPROPION XR 300 MG [Suspect]
     Active Substance: BUPROPION HYDROCHLORIDE
     Indication: DEPRESSION
     Dosage: ?          QUANTITY:1 TABLET(S);?
     Route: 048
     Dates: start: 20210808, end: 20210818
  3. LOSARTAN 100MG [Concomitant]
     Active Substance: LOSARTAN
  4. HYDROCHLOROTHIAZIDE 12MG [Concomitant]
  5. MULTI VITAMIN [Concomitant]
     Active Substance: VITAMINS

REACTIONS (6)
  - Morbid thoughts [None]
  - Feeling hot [None]
  - Depressed mood [None]
  - Dyspnoea [None]
  - Product substitution issue [None]
  - Mood altered [None]

NARRATIVE: CASE EVENT DATE: 20210818
